FAERS Safety Report 5417253-3 (Version None)
Quarter: 2007Q3

REPORT INFORMATION
  Report Type: 
  Country: None (occurrence: None)
  Receive Date: 20070816
  Receipt Date: 20070810
  Transmission Date: 20080115
  Serious: Yes (Other)
  Sender: FDA-Public Use
  Company Number: DE-SHR-DE-2007-023900

PATIENT
  Age: 65 Year
  Sex: Female
  Weight: 80 kg

DRUGS (1)
  1. ULTRAVIST 370 [Suspect]
     Indication: ANGIOGRAM
     Dosage: 150 ML, 1 DOSE
     Route: 013
     Dates: start: 20070627, end: 20070627

REACTIONS (3)
  - DISORIENTATION [None]
  - DIZZINESS [None]
  - VISUAL FIELD DEFECT [None]
